FAERS Safety Report 9772300 (Version 1)
Quarter: 2013Q4

REPORT INFORMATION
  Report Type: Report from Study
  Country: JP (occurrence: JP)
  Receive Date: 20131219
  Receipt Date: 20131219
  Transmission Date: 20140711
  Serious: Yes (Hospitalization, Other)
  Sender: FDA-Public Use
  Company Number: JP-TAKEDA-2013TJP003846

PATIENT
  Age: 68 Year
  Sex: Male
  Weight: 55.5 kg

DRUGS (6)
  1. ALOGLIPTIN [Suspect]
     Indication: TYPE 2 DIABETES MELLITUS
     Dosage: 25 MG, QD
     Route: 048
     Dates: start: 20120807, end: 20130808
  2. ALOGLIPTIN [Suspect]
     Dosage: 12.5 MG, QD
     Route: 048
     Dates: start: 20130809
  3. METGLUCO [Concomitant]
     Indication: TYPE 2 DIABETES MELLITUS
     Dosage: 500 MG, 1 DAYS
     Route: 048
     Dates: end: 20121017
  4. BAYASPIRIN [Concomitant]
     Dosage: UNK
     Route: 048
  5. OLMETEC [Concomitant]
     Dosage: UNK
     Route: 048
  6. LIPITOR [Concomitant]
     Dosage: UNK
     Route: 048

REACTIONS (1)
  - Papillary thyroid cancer [Recovered/Resolved]
